FAERS Safety Report 4971742-4 (Version None)
Quarter: 2006Q2

REPORT INFORMATION
  Report Type: 
  Country: None (occurrence: None)
  Receive Date: 20060406
  Receipt Date: 20060324
  Transmission Date: 20061013
  Serious: Yes (Disabling)
  Sender: FDA-Public Use
  Company Number: 2006045092

PATIENT
  Age: 51 Year
  Sex: Female
  Weight: 43 kg

DRUGS (4)
  1. IRINOTECAN HCL [Suspect]
     Indication: PANCREATIC CARCINOMA
     Dosage: 120 MG (120 MG), INTRAVENOUS; 80 MG (80 MG), INTRAVENOUS
     Route: 042
     Dates: start: 20050707, end: 20050826
  2. IRINOTECAN HCL [Suspect]
     Indication: PANCREATIC CARCINOMA
     Dosage: 120 MG (120 MG), INTRAVENOUS; 80 MG (80 MG), INTRAVENOUS
     Route: 042
     Dates: start: 20050909, end: 20050926
  3. IRINOTECAN HCL [Suspect]
     Indication: PANCREATIC CARCINOMA
     Dosage: 120 MG (120 MG), INTRAVENOUS; 80 MG (80 MG), INTRAVENOUS
     Route: 042
     Dates: start: 20051118, end: 20051216
  4. NEUPOGEN [Concomitant]

REACTIONS (1)
  - HEPATIC STEATOSIS [None]
